FAERS Safety Report 20530159 (Version 1)
Quarter: 2022Q1

REPORT INFORMATION
  Report Type: Spontaneous
  Country: SE (occurrence: SE)
  Receive Date: 20220301
  Receipt Date: 20220301
  Transmission Date: 20220423
  Serious: Yes (Other)
  Sender: FDA-Public Use
  Company Number: SE-ALLERGAN-2205020US

PATIENT
  Age: 75 Year
  Sex: Female

DRUGS (4)
  1. BRIMONIDINE [Suspect]
     Active Substance: BRIMONIDINE TARTRATE
     Indication: Product used for unknown indication
     Route: 065
  2. BRIMONIDINE [Suspect]
     Active Substance: BRIMONIDINE TARTRATE
  3. ALPHAGAN P [Suspect]
     Active Substance: BRIMONIDINE TARTRATE
     Indication: Glaucoma
     Dosage: ? 0.2% W/V (2 MG/ML)
     Route: 065
     Dates: end: 20220130
  4. BIMATOPROST\TIMOLOL [Suspect]
     Active Substance: BIMATOPROST\TIMOLOL
     Indication: Product used for unknown indication
     Dosage: 0.3/5 MG/ML
     Route: 065

REACTIONS (8)
  - Cataract [Unknown]
  - Eye swelling [Unknown]
  - Eye disorder [Recovered/Resolved]
  - Swelling of eyelid [Unknown]
  - Ocular hyperaemia [Recovered/Resolved]
  - Iritis [Unknown]
  - Hypersensitivity [Recovered/Resolved]
  - Eye pruritus [Recovered/Resolved]

NARRATIVE: CASE EVENT DATE: 20210601
